FAERS Safety Report 4301985-4 (Version None)
Quarter: 2004Q1

REPORT INFORMATION
  Report Type: 
  Country: None (occurrence: None)
  Receive Date: 20040220
  Receipt Date: 20040209
  Transmission Date: 20041129
  Serious: Yes (Hospitalization)
  Sender: FDA-Public Use
  Company Number: 04P-013-0250152-00

PATIENT
  Age: 40 Year
  Sex: Female
  Weight: 100 kg

DRUGS (3)
  1. MERIDIA [Suspect]
     Indication: OBESITY
     Dosage: 1 IN 1 D, PER ORAL
     Route: 048
     Dates: start: 20030501, end: 20030501
  2. FENOFIBRATE [Concomitant]
  3. LEOTHYROXINE SODIUM [Concomitant]

REACTIONS (1)
  - HAEMOLYTIC ANAEMIA [None]
